FAERS Safety Report 19034398 (Version 6)
Quarter: 2021Q2

REPORT INFORMATION
  Report Type: Report from Study
  Country: BR (occurrence: BR)
  Receive Date: 20210319
  Receipt Date: 20210615
  Transmission Date: 20210717
  Serious: Yes (Other)
  Sender: FDA-Public Use
  Company Number: BR-TAKEDA-2021TUS013454

PATIENT
  Age: 67 Year
  Sex: Female
  Weight: 70.5 kg

DRUGS (39)
  1. TEDUGLUTIDE [Suspect]
     Active Substance: TEDUGLUTIDE
     Indication: SHORT-BOWEL SYNDROME
     Dosage: 0.32 ML
     Route: 058
     Dates: start: 20210225
  2. TEDUGLUTIDE [Suspect]
     Active Substance: TEDUGLUTIDE
     Dosage: 0.22 MILLILITER, QD
     Route: 058
     Dates: start: 20210223
  3. TEDUGLUTIDE [Suspect]
     Active Substance: TEDUGLUTIDE
     Dosage: 0.22 MILLILITER, QD
     Route: 065
     Dates: start: 20210225, end: 20210411
  4. TEDUGLUTIDE [Suspect]
     Active Substance: TEDUGLUTIDE
     Dosage: 1.6 MILLIGRAM
     Route: 058
     Dates: start: 20210225
  5. TEDUGLUTIDE [Suspect]
     Active Substance: TEDUGLUTIDE
     Dosage: 1.6 MILLIGRAM
     Route: 058
     Dates: start: 20210225
  6. TEDUGLUTIDE [Suspect]
     Active Substance: TEDUGLUTIDE
     Dosage: 1.6 MILLIGRAM
     Route: 058
     Dates: start: 20210225
  7. TEDUGLUTIDE [Suspect]
     Active Substance: TEDUGLUTIDE
     Dosage: 1.6 MILLIGRAM
     Route: 058
     Dates: start: 20210225
  8. RIVOTRIL [Concomitant]
     Active Substance: CLONAZEPAM
     Indication: INSOMNIA
     Dosage: UNK
     Route: 065
  9. ZOFRAN [Concomitant]
     Active Substance: ONDANSETRON HYDROCHLORIDE
     Dosage: UNK UNK, TID
     Route: 042
  10. TEDUGLUTIDE [Suspect]
     Active Substance: TEDUGLUTIDE
     Indication: SHORT-BOWEL SYNDROME
     Dosage: 0.32 ML
     Route: 058
     Dates: start: 20210225
  11. TEDUGLUTIDE [Suspect]
     Active Substance: TEDUGLUTIDE
     Dosage: 0.22 MILLILITER, QD
     Route: 065
     Dates: start: 20210225, end: 20210411
  12. TEDUGLUTIDE [Suspect]
     Active Substance: TEDUGLUTIDE
     Dosage: 0.22 MILLILITER, QD
     Route: 065
     Dates: start: 20210225, end: 20210411
  13. TEDUGLUTIDE [Suspect]
     Active Substance: TEDUGLUTIDE
     Dosage: 1.6 MILLIGRAM
     Route: 058
     Dates: start: 20210225
  14. TEDUGLUTIDE [Suspect]
     Active Substance: TEDUGLUTIDE
     Dosage: 1.6 MILLIGRAM
     Route: 058
     Dates: start: 20210225
  15. XARELTO [Concomitant]
     Active Substance: RIVAROXABAN
     Indication: PRODUCT USED FOR UNKNOWN INDICATION
     Dosage: UNK
     Route: 065
  16. TPN [Concomitant]
     Active Substance: AMINO ACIDS\DEXTROSE\ELECTROLYTES NOS\SOYBEAN OIL
     Dosage: 1000 MILLILITER
     Route: 065
  17. TEDUGLUTIDE [Suspect]
     Active Substance: TEDUGLUTIDE
     Indication: FUNCTIONAL GASTROINTESTINAL DISORDER
     Dosage: 0.32 MILLILITER
     Route: 058
     Dates: start: 20210225, end: 20210328
  18. TEDUGLUTIDE [Suspect]
     Active Substance: TEDUGLUTIDE
     Dosage: 0.22 MILLILITER, QD
     Route: 058
     Dates: start: 20210223
  19. TEDUGLUTIDE [Suspect]
     Active Substance: TEDUGLUTIDE
     Dosage: 0.22 MILLILITER, QD
     Route: 058
     Dates: start: 20210223
  20. TEDUGLUTIDE [Suspect]
     Active Substance: TEDUGLUTIDE
     Dosage: 0.22 MILLILITER, QD
     Route: 058
     Dates: start: 20210223
  21. LUFTAL MAX [Concomitant]
     Indication: PRODUCT USED FOR UNKNOWN INDICATION
     Dosage: UNK
     Route: 065
  22. MELATONIN [Concomitant]
     Active Substance: MELATONIN
     Indication: INSOMNIA
     Dosage: 5 MILLIGRAM
     Route: 048
  23. TEDUGLUTIDE [Suspect]
     Active Substance: TEDUGLUTIDE
     Indication: SHORT-BOWEL SYNDROME
     Dosage: 0.32 ML
     Route: 058
     Dates: start: 20210225
  24. TEDUGLUTIDE [Suspect]
     Active Substance: TEDUGLUTIDE
     Indication: FUNCTIONAL GASTROINTESTINAL DISORDER
     Dosage: 0.32 MILLILITER
     Route: 058
     Dates: start: 20210225, end: 20210328
  25. TEDUGLUTIDE [Suspect]
     Active Substance: TEDUGLUTIDE
     Dosage: 0.32 MILLILITER
     Route: 058
     Dates: start: 20210225, end: 20210328
  26. TEDUGLUTIDE [Suspect]
     Active Substance: TEDUGLUTIDE
     Dosage: 0.32 MILLILITER
     Route: 058
     Dates: start: 20210225, end: 20210328
  27. NUTREM [Concomitant]
  28. PLASIL [METOCLOPRAMIDE] [Concomitant]
     Active Substance: METOCLOPRAMIDE
  29. NOVALGINA [Concomitant]
     Active Substance: METAMIZOLE SODIUM
  30. TEDUGLUTIDE [Suspect]
     Active Substance: TEDUGLUTIDE
     Dosage: 1.6 MILLIGRAM
     Route: 058
     Dates: start: 20210225
  31. TEDUGLUTIDE [Suspect]
     Active Substance: TEDUGLUTIDE
     Indication: FUNCTIONAL GASTROINTESTINAL DISORDER
     Dosage: 0.32 MILLILITER
     Route: 058
     Dates: start: 20210225, end: 20210328
  32. TEDUGLUTIDE [Suspect]
     Active Substance: TEDUGLUTIDE
     Dosage: 0.32 MILLILITER
     Route: 058
     Dates: start: 20210225, end: 20210328
  33. TEDUGLUTIDE [Suspect]
     Active Substance: TEDUGLUTIDE
     Dosage: 1.6 MILLIGRAM
     Route: 058
     Dates: start: 20210225
  34. IMOSEC [Concomitant]
     Active Substance: LOPERAMIDE
     Indication: PRODUCT USED FOR UNKNOWN INDICATION
     Dosage: 7 DOSAGE FORM, QD
     Route: 065
  35. TEDUGLUTIDE [Suspect]
     Active Substance: TEDUGLUTIDE
     Indication: SHORT-BOWEL SYNDROME
     Dosage: 0.32 ML
     Route: 058
     Dates: start: 20210225
  36. TEDUGLUTIDE [Suspect]
     Active Substance: TEDUGLUTIDE
     Indication: FUNCTIONAL GASTROINTESTINAL DISORDER
     Dosage: 0.32 MILLILITER
     Route: 058
     Dates: start: 20210225, end: 20210328
  37. TEDUGLUTIDE [Suspect]
     Active Substance: TEDUGLUTIDE
     Dosage: 0.32 MILLILITER
     Route: 058
     Dates: start: 20210225, end: 20210328
  38. TEDUGLUTIDE [Suspect]
     Active Substance: TEDUGLUTIDE
     Dosage: 0.22 MILLILITER, QD
     Route: 065
     Dates: start: 20210225, end: 20210411
  39. DRAMIN [Suspect]
     Active Substance: DIMENHYDRINATE
     Dosage: UNK
     Route: 065

REACTIONS (46)
  - Blood pressure decreased [Recovered/Resolved]
  - Malaise [Not Recovered/Not Resolved]
  - Fatigue [Recovering/Resolving]
  - Urine output increased [Recovering/Resolving]
  - Pain in extremity [Recovering/Resolving]
  - Abdominal distension [Not Recovered/Not Resolved]
  - Asthenia [Recovering/Resolving]
  - Pyrexia [Recovering/Resolving]
  - Weight decreased [Unknown]
  - Dyspepsia [Recovering/Resolving]
  - Hiccups [Recovering/Resolving]
  - Chills [Unknown]
  - Stoma site pain [Not Recovered/Not Resolved]
  - Parenteral nutrition [Unknown]
  - Anxiety [Recovering/Resolving]
  - Nausea [Recovered/Resolved]
  - Apathy [Not Recovered/Not Resolved]
  - Hyperphagia [Not Recovered/Not Resolved]
  - Poor quality sleep [Not Recovered/Not Resolved]
  - Pallor [Not Recovered/Not Resolved]
  - Vomiting [Recovered/Resolved]
  - Dermatitis allergic [Recovered/Resolved]
  - Dehydration [Recovering/Resolving]
  - Frequent bowel movements [Recovering/Resolving]
  - Application site haemorrhage [Recovering/Resolving]
  - Procedural pain [Not Recovered/Not Resolved]
  - Insomnia [Recovering/Resolving]
  - Asthenia [Recovering/Resolving]
  - Pain [Recovered/Resolved]
  - Gastrointestinal disorder [Not Recovered/Not Resolved]
  - Eating disorder symptom [Not Recovered/Not Resolved]
  - Headache [Not Recovered/Not Resolved]
  - Ileostomy [Recovering/Resolving]
  - Chromaturia [Recovering/Resolving]
  - Abnormal faeces [Unknown]
  - Weight fluctuation [Not Recovered/Not Resolved]
  - Somnolence [Recovering/Resolving]
  - Allergic pharyngitis [Unknown]
  - Stoma complication [Not Recovered/Not Resolved]
  - Hyperhidrosis [Not Recovered/Not Resolved]
  - Cold sweat [Recovered/Resolved]
  - Aphonia [Not Recovered/Not Resolved]
  - Feeling abnormal [Not Recovered/Not Resolved]
  - Flatulence [Recovering/Resolving]
  - Feeling abnormal [Not Recovered/Not Resolved]
  - Decreased appetite [Recovering/Resolving]

NARRATIVE: CASE EVENT DATE: 20210225
